FAERS Safety Report 13776888 (Version 1)
Quarter: 2017Q3

REPORT INFORMATION
  Report Type: Spontaneous
  Country: US (occurrence: US)
  Receive Date: 20170721
  Receipt Date: 20170721
  Transmission Date: 20171127
  Serious: Yes (Other)
  Sender: FDA-Public Use
  Company Number: US-BAYER-2017-139790

PATIENT
  Sex: Female

DRUGS (1)
  1. MIRENA [Suspect]
     Active Substance: LEVONORGESTREL
     Dosage: 20 MCG/24HR, CONT
     Route: 015
     Dates: start: 2010

REACTIONS (7)
  - Vaginal haemorrhage [None]
  - Sneezing [None]
  - Back pain [None]
  - Device use issue [None]
  - Abdominal pain [None]
  - Pregnancy with contraceptive device [None]
  - Amenorrhoea [None]
